FAERS Safety Report 10366806 (Version 10)
Quarter: 2015Q3

REPORT INFORMATION
  Report Type: Report from Study
  Country: US (occurrence: US)
  Receive Date: 20140807
  Receipt Date: 20150804
  Transmission Date: 20151125
  Serious: Yes (Other)
  Sender: FDA-Public Use
  Company Number: US-SA-2014SA079517

PATIENT
  Age: 47 Year
  Sex: Female
  Weight: 45.35 kg

DRUGS (3)
  1. PRILOSEC [Concomitant]
     Active Substance: OMEPRAZOLE MAGNESIUM
     Indication: GASTROOESOPHAGEAL REFLUX DISEASE
  2. AUBAGIO [Suspect]
     Active Substance: TERIFLUNOMIDE
     Indication: MULTIPLE SCLEROSIS
     Dosage: BREAKING THE 14 MG TABLETS OF AUBAGIO IN HALF
     Route: 048
     Dates: start: 20150622
  3. AUBAGIO [Suspect]
     Active Substance: TERIFLUNOMIDE
     Indication: MULTIPLE SCLEROSIS
     Dosage: AT BEDTIME.
     Route: 048
     Dates: start: 20140604, end: 20150602

REACTIONS (44)
  - Balance disorder [Unknown]
  - Bladder disorder [Recovering/Resolving]
  - Cognitive disorder [Unknown]
  - Diarrhoea [Not Recovered/Not Resolved]
  - Weight decreased [Recovering/Resolving]
  - Abdominal discomfort [Recovering/Resolving]
  - Optic neuritis [Recovered/Resolved]
  - Eye pain [Unknown]
  - Arthralgia [Unknown]
  - Impaired driving ability [Unknown]
  - Ovarian cyst [Recovering/Resolving]
  - Nausea [Recovering/Resolving]
  - Gait disturbance [Unknown]
  - Accident [Unknown]
  - Decreased appetite [Recovering/Resolving]
  - Pain in extremity [Unknown]
  - Anger [Unknown]
  - Depression [Unknown]
  - Muscle spasms [Unknown]
  - Emotional distress [Unknown]
  - Chest pain [Unknown]
  - Gastrointestinal disorder [Unknown]
  - Anxiety [Unknown]
  - Pain [Unknown]
  - Speech disorder [Not Recovered/Not Resolved]
  - Myalgia [Unknown]
  - Alopecia [Unknown]
  - Back pain [Recovered/Resolved]
  - Uterine cyst [Recovering/Resolving]
  - Oligomenorrhoea [Recovering/Resolving]
  - Sciatica [Unknown]
  - Fatigue [Unknown]
  - Dyspnoea [Not Recovered/Not Resolved]
  - Sleep disorder [Recovered/Resolved]
  - Palpitations [Unknown]
  - Musculoskeletal pain [Unknown]
  - Visual impairment [Unknown]
  - Retching [Not Recovered/Not Resolved]
  - Paraesthesia [Unknown]
  - Unevaluable event [Unknown]
  - Vomiting [Recovering/Resolving]
  - Gingival recession [Recovering/Resolving]
  - Hypoaesthesia [Unknown]
  - Off label use [Unknown]

NARRATIVE: CASE EVENT DATE: 2014
